FAERS Safety Report 12684349 (Version 2)
Quarter: 2016Q3

REPORT INFORMATION
  Report Type: Report from Study
  Country: MX (occurrence: MX)
  Receive Date: 20160825
  Receipt Date: 20160922
  Transmission Date: 20161109
  Serious: Yes (Other)
  Sender: FDA-Public Use
  Company Number: PHHY2016MX116384

PATIENT
  Sex: Female

DRUGS (1)
  1. DIOVAN [Suspect]
     Active Substance: VALSARTAN
     Indication: DIABETES MELLITUS
     Dosage: 80 MG,
     Route: 065

REACTIONS (3)
  - Diabetes mellitus [Unknown]
  - Product use issue [Recovered/Resolved]
  - Gastric disorder [Unknown]
